FAERS Safety Report 8155766-4 (Version None)
Quarter: 2012Q1

REPORT INFORMATION
  Report Type: 
  Country: None (occurrence: None)
  Receive Date: 20120215
  Receipt Date: 20120206
  Transmission Date: 20120608
  Serious: Yes (Hospitalization, Disabling)
  Sender: FDA-Public Use
  Company Number: 2012MA001727

PATIENT
  Age: 18 Year
  Sex: Male

DRUGS (8)
  1. HALOPERIDOL [Suspect]
     Indication: PSYCHOTIC DISORDER
     Dosage: 5 MG, QD
  2. CLONAZEPAM [Suspect]
     Indication: SCHIZOPHRENIA
     Dosage: 4 MG, QD
  3. PROPOFOL [Concomitant]
  4. OLANZAPINE [Concomitant]
  5. MIDAZOLAM [Concomitant]
  6. RISPERIDONE [Suspect]
     Indication: SCHIZOPHRENIA
     Dosage: 8 MG, QD
  7. CLOZAPINE [Concomitant]
  8. BIPERIDEN HYDROCHLORIDE TAB [Concomitant]

REACTIONS (9)
  - TARDIVE DYSKINESIA [None]
  - TACHYCARDIA [None]
  - BLOOD CREATINE PHOSPHOKINASE INCREASED [None]
  - DYSTONIA [None]
  - TORTICOLLIS [None]
  - ACUTE PSYCHOSIS [None]
  - INSOMNIA [None]
  - SELF INJURIOUS BEHAVIOUR [None]
  - MULTIPLE INJURIES [None]
